FAERS Safety Report 6746487-0 (Version None)
Quarter: 2010Q2

REPORT INFORMATION
  Report Type: 
  Country: None (occurrence: None)
  Receive Date: 20100528
  Receipt Date: 20100329
  Transmission Date: 20101027
  Serious: No
  Sender: FDA-Public Use
  Company Number: US-ASTRAZENECA-2010SE14486

PATIENT
  Sex: Female

DRUGS (2)
  1. PRILOSEC OTC [Suspect]
     Route: 048
     Dates: start: 20100324
  2. MEDICATION FOR SHINGLES [Concomitant]
     Indication: HERPES ZOSTER
     Dosage: UNKNOWN

REACTIONS (2)
  - RASH ERYTHEMATOUS [None]
  - SKIN BURNING SENSATION [None]
